FAERS Safety Report 6815835-5 (Version None)
Quarter: 2010Q3

REPORT INFORMATION
  Report Type: 
  Country: None (occurrence: None)
  Receive Date: 20100705
  Receipt Date: 20100624
  Transmission Date: 20110219
  Serious: Yes (Hospitalization)
  Sender: FDA-Public Use
  Company Number: US-BIOGENIDEC-2010BI021407

PATIENT
  Age: 50 Year
  Sex: Male

DRUGS (4)
  1. TYSABRI [Suspect]
     Indication: MULTIPLE SCLEROSIS
     Route: 042
     Dates: start: 20050106, end: 20050203
  2. TYSABRI [Suspect]
     Route: 042
     Dates: start: 20070403, end: 20091117
  3. AVONEX [Concomitant]
     Indication: MULTIPLE SCLEROSIS
     Route: 030
     Dates: start: 20010111, end: 20070120
  4. AVONEX [Concomitant]
     Route: 030
     Dates: start: 20100103

REACTIONS (2)
  - FLUID RETENTION [None]
  - OVERWEIGHT [None]
